FAERS Safety Report 7997641-1 (Version None)
Quarter: 2011Q4

REPORT INFORMATION
  Report Type: 
  Country: None (occurrence: None)
  Receive Date: 20111221
  Receipt Date: 20111213
  Transmission Date: 20120403
  Serious: Yes (Hospitalization)
  Sender: FDA-Public Use
  Company Number: US-JNJFOC-20110804106

PATIENT
  Sex: Male
  Weight: 79.9 kg

DRUGS (12)
  1. AMBIEN [Concomitant]
     Route: 048
     Dates: start: 20090227
  2. CELEXA [Concomitant]
     Route: 048
     Dates: start: 20110401
  3. IMODIUM [Concomitant]
     Indication: COLITIS ULCERATIVE
     Dates: start: 20100712
  4. CHLORHEXIDINE GLUCONATE [Concomitant]
     Route: 061
     Dates: start: 20090216
  5. GOLIMUMAB [Suspect]
     Indication: COLITIS ULCERATIVE
     Route: 058
     Dates: start: 20110614
  6. PROPECIA [Concomitant]
     Route: 048
     Dates: start: 20090316
  7. RANITIDINE [Concomitant]
     Route: 048
     Dates: start: 20100802
  8. HIBICLENS [Concomitant]
     Route: 061
     Dates: start: 20090216
  9. DICYCLOMINE [Concomitant]
     Route: 048
     Dates: start: 20080917
  10. GOLIMUMAB [Suspect]
     Route: 058
     Dates: start: 20080908
  11. BETAMETHASONE VALERATE [Concomitant]
     Route: 061
     Dates: start: 20090316
  12. AMITRIPTYLINE HCL [Concomitant]
     Route: 048
     Dates: start: 20110601, end: 20110730

REACTIONS (7)
  - PNEUMONIA LEGIONELLA [None]
  - HEPATIC INFECTION BACTERIAL [None]
  - RESPIRATORY FAILURE [None]
  - THROMBOCYTOSIS [None]
  - PLEURAL EFFUSION [None]
  - SEPTIC EMBOLUS [None]
  - HYPONATRAEMIA [None]
